FAERS Safety Report 10187966 (Version 1)
Quarter: 2014Q2

REPORT INFORMATION
  Report Type: Spontaneous
  Country: US (occurrence: US)
  Receive Date: 20140522
  Receipt Date: 20140522
  Transmission Date: 20141212
  Serious: No
  Sender: FDA-Public Use
  Company Number: US-SA-2013SA096152

PATIENT
  Age: 51 Year
  Sex: Male

DRUGS (4)
  1. LANTUS SOLOSTAR [Suspect]
     Indication: TYPE 2 DIABETES MELLITUS
     Dosage: DOSE:10 UNIT(S)
     Route: 051
     Dates: start: 20130918
  2. SOLOSTAR [Concomitant]
  3. GLIPIZIDE [Suspect]
     Route: 065
  4. METFORMIN [Suspect]
     Route: 065

REACTIONS (3)
  - Tremor [Not Recovered/Not Resolved]
  - Cold sweat [Not Recovered/Not Resolved]
  - Blood glucose increased [Not Recovered/Not Resolved]
